FAERS Safety Report 8036348-1 (Version None)
Quarter: 2012Q1

REPORT INFORMATION
  Report Type: 
  Country: None (occurrence: None)
  Receive Date: 20120111
  Receipt Date: 20111209
  Transmission Date: 20120608
  Serious: No
  Sender: FDA-Public Use
  Company Number: US-GLAXOSMITHKLINE-A0957532A

PATIENT
  Age: 69 Year
  Sex: Male

DRUGS (5)
  1. CLONIDINE [Concomitant]
  2. JALYN [Suspect]
     Indication: BENIGN PROSTATIC HYPERPLASIA
     Dosage: 1CAP PER DAY
     Route: 048
     Dates: start: 20111208, end: 20111209
  3. AMLODIPINE [Concomitant]
  4. EYE DROPS [Concomitant]
  5. DIOVAN [Concomitant]

REACTIONS (2)
  - DIZZINESS [None]
  - BLOOD PRESSURE FLUCTUATION [None]
